FAERS Safety Report 6138151-6 (Version None)
Quarter: 2009Q1

REPORT INFORMATION
  Report Type: 
  Country: None (occurrence: None)
  Receive Date: 20090327
  Receipt Date: 20090317
  Transmission Date: 20090719
  Serious: Yes (Other)
  Sender: FDA-Public Use
  Company Number: 2009US000818

PATIENT
  Age: 62 Year

DRUGS (8)
  1. LEXICAN (REGADENOSON) INJECTION, 0.08MG/ML [Suspect]
     Indication: SCAN MYOCARDIAL PERFUSION
     Dosage: 0.4 MG, IV NOS
     Route: 042
     Dates: start: 20090312, end: 20090312
  2. PRILOSEC [Concomitant]
  3. VITAMINS NOS (VITAMINS NOS) [Concomitant]
  4. METOPROLOL TARTRATE [Concomitant]
  5. MOTRIN [Concomitant]
  6. ASPIRIN [Concomitant]
  7. LISINOPRIL [Concomitant]
  8. AMLODIPINE [Concomitant]

REACTIONS (3)
  - HEADACHE [None]
  - HYPERTENSION [None]
  - SCAN MYOCARDIAL PERFUSION ABNORMAL [None]
